FAERS Safety Report 9967809 (Version 1)
Quarter: 2014Q1

REPORT INFORMATION
  Report Type: Report from Study
  Country: US (occurrence: US)
  Receive Date: 20140306
  Receipt Date: 20140306
  Transmission Date: 20141002
  Serious: No
  Sender: FDA-Public Use
  Company Number: US-ABBVIE-13P-163-1144869-00

PATIENT
  Age: 32 Year
  Sex: Female

DRUGS (5)
  1. HUMIRA [Suspect]
     Indication: RHEUMATOID ARTHRITIS
     Dates: start: 20130529
  2. DEPO-PROVERA [Concomitant]
     Indication: CONTRACEPTION
  3. SYMBICORT [Concomitant]
     Indication: PRODUCT USED FOR UNKNOWN INDICATION
     Dosage: TWO PUFFS DAILY
  4. TWO ACNE CREAMS [Concomitant]
     Indication: PRODUCT USED FOR UNKNOWN INDICATION
  5. TYLENOL PM [Concomitant]
     Indication: INSOMNIA
     Dosage: EVERY NIGHT

REACTIONS (1)
  - Injection site bruising [Not Recovered/Not Resolved]
